FAERS Safety Report 10196715 (Version 4)
Quarter: 2014Q3

REPORT INFORMATION
  Report Type: Spontaneous
  Country: GB (occurrence: GB)
  Receive Date: 20140527
  Receipt Date: 20140725
  Transmission Date: 20150326
  Serious: Yes (Hospitalization, Disabling, Other)
  Sender: FDA-Public Use
  Company Number: GB-PFIZER INC-2014092562

PATIENT
  Age: 58 Year
  Sex: Female
  Weight: 89 kg

DRUGS (10)
  1. LYRICA [Suspect]
     Active Substance: PREGABALIN
     Indication: GINGIVAL PAIN
     Dosage: 50 MG, 3X/DAY
     Route: 048
  2. LYRICA [Suspect]
     Active Substance: PREGABALIN
     Indication: FACIAL NEURALGIA
     Dosage: 150 MG, 4X/DAY
     Route: 048
     Dates: start: 20131129, end: 20140414
  3. HORMONIN [Concomitant]
     Active Substance: ESTRADIOL\ESTRIOL\ESTRONE
     Indication: HORMONE REPLACEMENT THERAPY
     Dosage: 1 MG, DAILY
     Route: 048
     Dates: start: 20110502
  4. FEXOFENADINE [Concomitant]
     Active Substance: FEXOFENADINE\FEXOFENADINE HYDROCHLORIDE
     Indication: HYPERSENSITIVITY
     Dosage: 180 MG, DAILY
     Route: 048
     Dates: start: 20140224, end: 20140429
  5. VENLAFAXINE MODIFIED RELEASE [Concomitant]
     Indication: ANXIETY
     Dosage: 150 MG, UNK
     Dates: end: 201403
  6. VENLAFAXINE [Concomitant]
     Active Substance: VENLAFAXINE HYDROCHLORIDE
     Indication: DEPRESSION
     Dosage: 150 MG, 1X/DAY
     Route: 048
     Dates: start: 20130902, end: 20140305
  7. ASPIRIN. [Concomitant]
     Active Substance: ASPIRIN
     Indication: TRANSIENT ISCHAEMIC ATTACK
     Dosage: 75 MG, DAILY
     Dates: start: 20140407
  8. DIAZEPAM. [Concomitant]
     Active Substance: DIAZEPAM
     Dosage: 2 MG, AS NEEDED UP TO 4X/DAY
  9. LYRICA [Suspect]
     Active Substance: PREGABALIN
     Indication: FACIAL PAIN
     Dosage: 25 MG, 3X/DAY
     Route: 048
     Dates: start: 20131112
  10. LYRICA [Suspect]
     Active Substance: PREGABALIN
     Indication: ORAL PAIN
     Dosage: 75 MG, 3X/DAY
     Route: 048
     Dates: end: 20131128

REACTIONS (17)
  - Skin discolouration [Not Recovered/Not Resolved]
  - Gingival recession [Not Recovered/Not Resolved]
  - Hypoaesthesia [Not Recovered/Not Resolved]
  - Hypertrichosis [Unknown]
  - Oral pain [Unknown]
  - Gingival pain [Not Recovered/Not Resolved]
  - Joint swelling [Not Recovered/Not Resolved]
  - Autoimmune disorder [Not Recovered/Not Resolved]
  - Blister [Not Recovered/Not Resolved]
  - Burning sensation [Not Recovered/Not Resolved]
  - Choking sensation [Not Recovered/Not Resolved]
  - Alopecia [Unknown]
  - Ulcer [Unknown]
  - Withdrawal syndrome [Unknown]
  - Pruritus [Unknown]
  - VIIth nerve paralysis [Unknown]
  - Dysphagia [Unknown]

NARRATIVE: CASE EVENT DATE: 20131121
